FAERS Safety Report 19929976 (Version 1)
Quarter: 2021Q4

REPORT INFORMATION
  Report Type: Spontaneous
  Country: US (occurrence: US)
  Receive Date: 20211007
  Receipt Date: 20211007
  Transmission Date: 20220303
  Serious: No
  Sender: FDA-Public Use
  Company Number: US-009507513-2109USA002356

PATIENT
  Age: 57 Year
  Sex: Female

DRUGS (8)
  1. KEYTRUDA [Suspect]
     Active Substance: PEMBROLIZUMAB
     Dosage: 200 MG EVERY 21 DAYS
     Route: 042
     Dates: start: 20210525, end: 20210525
  2. KEYTRUDA [Suspect]
     Active Substance: PEMBROLIZUMAB
     Dosage: 200 MG EVERY 21 DAYS
     Route: 042
     Dates: start: 20210615, end: 20210615
  3. KEYTRUDA [Suspect]
     Active Substance: PEMBROLIZUMAB
     Dosage: 200 MG EVERY 21 DAYS
     Route: 042
     Dates: start: 20210706, end: 20210706
  4. KEYTRUDA [Suspect]
     Active Substance: PEMBROLIZUMAB
     Dosage: 200 MG EVERY 21 DAYS
     Route: 042
     Dates: start: 20210728, end: 20210728
  5. KEYTRUDA [Suspect]
     Active Substance: PEMBROLIZUMAB
     Dosage: 200 MG EVERY 21 DAYS
     Route: 042
     Dates: start: 20210817, end: 20210817
  6. KEYTRUDA [Suspect]
     Active Substance: PEMBROLIZUMAB
     Dosage: UNK
     Route: 042
     Dates: start: 20210907, end: 20210907
  7. PARAPLATIN [Suspect]
     Active Substance: CARBOPLATIN
     Dosage: 450 MILLIGRAM
     Route: 042
     Dates: end: 20210707
  8. ABRAXANE [Suspect]
     Active Substance: PACLITAXEL
     Dosage: 160 DOSAGE FORM
     Route: 042
     Dates: end: 20210810

REACTIONS (4)
  - Inappropriate schedule of product administration [Unknown]
  - Ill-defined disorder [Unknown]
  - Product prescribing error [Unknown]
  - Intercepted medication error [Unknown]

NARRATIVE: CASE EVENT DATE: 20210101
